FAERS Safety Report 16552021 (Version 1)
Quarter: 2019Q3

REPORT INFORMATION
  Report Type: Spontaneous
  Country: US (occurrence: US)
  Receive Date: 20190710
  Receipt Date: 20190710
  Transmission Date: 20191004
  Serious: No
  Sender: FDA-Public Use
  Company Number: US-009507513-1907USA000378

PATIENT
  Sex: Female

DRUGS (1)
  1. NUVARING [Suspect]
     Active Substance: ETHINYL ESTRADIOL\ETONOGESTREL
     Dosage: 1 RING, STRENGTH REPORTED AS 0.015/0.12 (UNITS NOT PROVIDED), FREQUENCY REPOTED AS INSERTED FOR 4 WE
     Route: 067

REACTIONS (4)
  - Inappropriate schedule of product administration [Unknown]
  - No adverse event [Unknown]
  - Product prescribing error [Unknown]
  - Incorrect product administration duration [Unknown]
